FAERS Safety Report 7280093-7 (Version None)
Quarter: 2011Q1

REPORT INFORMATION
  Report Type: 
  Country: None (occurrence: None)
  Receive Date: 20110208
  Receipt Date: 20110127
  Transmission Date: 20110831
  Serious: Yes (Other)
  Sender: FDA-Public Use
  Company Number: US-BRISTOL-MYERS SQUIBB COMPANY-15477797

PATIENT
  Age: 60 Year
  Sex: Female

DRUGS (9)
  1. METHOTREXATE [Concomitant]
  2. LISINOPRIL [Concomitant]
  3. LEVOTHYROXINE SODIUM [Concomitant]
  4. VITAMIN D [Concomitant]
  5. ORENCIA [Suspect]
     Indication: RHEUMATOID ARTHRITIS
     Dosage: TOTAL:6INFUSIONS; MOST RECEN INFUSION ON 11JAN11
     Dates: start: 20100801
  6. MULTI-VITAMIN [Concomitant]
  7. CARVEDILOL [Concomitant]
  8. PREDNISONE [Concomitant]
  9. TYLENOL W/ CODEINE [Concomitant]
     Dosage: 1DF:300MG+30MG

REACTIONS (2)
  - CEREBROVASCULAR DISORDER [None]
  - IRITIS [None]
